FAERS Safety Report 14274559 (Version 2)
Quarter: 2017Q4

REPORT INFORMATION
  Report Type: Report from Study
  Country: None (occurrence: IL)
  Receive Date: 20171211
  Receipt Date: 20171213
  Transmission Date: 20180321
  Serious: Yes (Hospitalization)
  Sender: FDA-Public Use
  Company Number: IL-ABBVIE-17K-082-2189425-00

PATIENT
  Age: 69 Year
  Sex: Female

DRUGS (2)
  1. DUODOPA [Suspect]
     Active Substance: CARBIDOPA\LEVODOPA
     Dosage: MORNING DOSE- 12.0 ML, FIXED RATE- 2.8 ML, EXTRA DOSE- 1.0 ML
     Route: 050
     Dates: start: 201712
  2. DUODOPA [Suspect]
     Active Substance: CARBIDOPA\LEVODOPA
     Indication: PARKINSON^S DISEASE
     Dosage: CURRENT MORNING DOSE- 13 ML, CURRENT FIXED RATE- 3.0 ML/ HOUR,??CURRENT EXTRA DOSE- 1.0 ML
     Route: 050
     Dates: start: 20171207, end: 201712

REACTIONS (3)
  - Oxygen saturation decreased [Unknown]
  - Constipation [Unknown]
  - Abdominal pain [Recovered/Resolved]

NARRATIVE: CASE EVENT DATE: 201712
